FAERS Safety Report 10149698 (Version 1)
Quarter: 2014Q2

REPORT INFORMATION
  Report Type: Spontaneous
  Country: DE (occurrence: DE)
  Receive Date: 20140502
  Receipt Date: 20140502
  Transmission Date: 20141212
  Serious: Yes (Hospitalization)
  Sender: FDA-Public Use
  Company Number: DE-JNJFOC-20140420686

PATIENT
  Age: 74 Year
  Sex: Male
  Weight: 75 kg

DRUGS (7)
  1. XARELTO [Suspect]
     Indication: CEREBROVASCULAR ACCIDENT PROPHYLAXIS
     Route: 048
     Dates: start: 20140410, end: 20140411
  2. XARELTO [Suspect]
     Indication: ATRIAL FIBRILLATION
     Route: 048
     Dates: start: 20140410, end: 20140411
  3. AMOCLAV [Suspect]
     Indication: INFECTION
     Route: 048
     Dates: start: 20140408, end: 20140411
  4. METOBETA [Concomitant]
     Indication: HYPERTENSIVE HEART DISEASE
     Route: 065
     Dates: start: 201403
  5. RAMILICH [Concomitant]
     Indication: HYPERTENSIVE HEART DISEASE
     Route: 065
     Dates: start: 201403
  6. DIGITOXIN [Concomitant]
     Indication: ATRIAL FIBRILLATION
     Route: 042
     Dates: start: 20140408
  7. ACETYLSALICYLIC ACID [Concomitant]
     Indication: CORONARY ARTERY DISEASE
     Route: 065
     Dates: start: 201403

REACTIONS (1)
  - Hypersensitivity vasculitis [Recovering/Resolving]
